FAERS Safety Report 5538124-8 (Version None)
Quarter: 2007Q4

REPORT INFORMATION
  Report Type: 
  Country: None (occurrence: None)
  Receive Date: 20071207
  Receipt Date: 20071127
  Transmission Date: 20080405
  Serious: Yes (Hospitalization, Other)
  Sender: FDA-Public Use
  Company Number: BE-ABBOTT-07P-013-0420152-00

PATIENT
  Sex: Male

DRUGS (7)
  1. NORVIR [Suspect]
     Indication: HIV INFECTION
  2. RITONAVIR [Concomitant]
     Indication: HIV INFECTION
     Dates: start: 20060923
  3. ATAZANAVIR [Concomitant]
     Indication: HIV INFECTION
     Dates: start: 20060923
  4. LAMIVUDINE [Concomitant]
     Indication: HIV INFECTION
     Dates: start: 20060923, end: 20061125
  5. TENOFOVIR DISOPROXIL FUMARATE [Concomitant]
     Indication: HIV INFECTION
     Dates: start: 20060923, end: 20061125
  6. ABACAVIR SULFATE W/LAMIVUDINE [Concomitant]
     Indication: HIV INFECTION
     Dates: start: 20061126
  7. NSAID'S [Concomitant]
     Indication: DRUG USE FOR UNKNOWN INDICATION
     Route: 054

REACTIONS (5)
  - LIPODYSTROPHY ACQUIRED [None]
  - PROSTATIC ADENOMA [None]
  - PROSTATITIS [None]
  - PSEUDOMONAS INFECTION [None]
  - SEPSIS [None]
